APPROVED DRUG PRODUCT: AMOXICILLIN
Active Ingredient: AMOXICILLIN
Strength: 400MG/5ML
Dosage Form/Route: FOR SUSPENSION;ORAL
Application: A065119 | Product #002 | TE Code: AB
Applicant: TEVA PHARMACEUTICALS USA INC
Approved: Dec 4, 2002 | RLD: No | RS: Yes | Type: RX